FAERS Safety Report 17588446 (Version 1)
Quarter: 2020Q1

REPORT INFORMATION
  Report Type: Other
  Country: FR (occurrence: FR)
  Receive Date: 20200327
  Receipt Date: 20200327
  Transmission Date: 20200409
  Serious: Yes (Death, Hospitalization, Other)
  Sender: FDA-Public Use
  Company Number: FR-APTAPHARMA INC.-2082052

PATIENT
  Age: 37 Year
  Sex: Male

DRUGS (2)
  1. COLCHICINE. [Suspect]
     Active Substance: COLCHICINE
     Route: 048
  2. IBUPROFEN. [Suspect]
     Active Substance: IBUPROFEN
     Indication: SUICIDE ATTEMPT
     Route: 048

REACTIONS (16)
  - Disseminated intravascular coagulation [Unknown]
  - Toxicity to various agents [Unknown]
  - Shock [Unknown]
  - Muscle spasms [Unknown]
  - Intestinal ischaemia [Fatal]
  - Overdose [Unknown]
  - Suicide attempt [Unknown]
  - Vomiting [Unknown]
  - Hepatic failure [Unknown]
  - Leukocytosis [Unknown]
  - Abdominal pain [Unknown]
  - Acute kidney injury [Unknown]
  - Multiple organ dysfunction syndrome [Unknown]
  - Patient uncooperative [Unknown]
  - Diarrhoea [Unknown]
  - Hyperthermia [Unknown]
